FAERS Safety Report 6700545-5 (Version None)
Quarter: 2010Q2

REPORT INFORMATION
  Report Type: 
  Country: None (occurrence: None)
  Receive Date: 20100428
  Receipt Date: 20100422
  Transmission Date: 20101027
  Serious: Yes (Death)
  Sender: FDA-Public Use
  Company Number: A0856781A

PATIENT
  Age: 79 Year
  Sex: Female

DRUGS (2)
  1. PROMACTA [Suspect]
     Indication: THROMBOCYTOPENIA
     Dosage: 50MG PER DAY
     Route: 048
     Dates: start: 20090414, end: 20090501
  2. CORTICOSTEROIDS [Concomitant]
     Indication: THROMBOCYTOPENIA
     Dates: start: 20090413

REACTIONS (2)
  - CARDIO-RESPIRATORY ARREST [None]
  - NON-HODGKIN'S LYMPHOMA [None]
